FAERS Safety Report 9417010 (Version 2)
Quarter: 2013Q3

REPORT INFORMATION
  Report Type: Spontaneous
  Country: US (occurrence: US)
  Receive Date: 20130724
  Receipt Date: 20130813
  Transmission Date: 20140515
  Serious: Yes (Other)
  Sender: FDA-Public Use
  Company Number: US-TEVA-420541USA

PATIENT
  Age: 43 Year
  Sex: Female
  Weight: 86.26 kg

DRUGS (3)
  1. PARAGARD 380A [Suspect]
     Indication: CONTRACEPTION
     Route: 015
     Dates: start: 2007, end: 20130717
  2. CARVEDILOL [Concomitant]
     Indication: HYPERTENSION
  3. IBUPROFEN [Concomitant]

REACTIONS (6)
  - Haemorrhage [Unknown]
  - Device dislocation [Unknown]
  - Embedded device [Unknown]
  - Device expulsion [Recovered/Resolved]
  - Medical device complication [Not Recovered/Not Resolved]
  - Vaginal discharge [Unknown]
